FAERS Safety Report 16920878 (Version 1)
Quarter: 2019Q4

REPORT INFORMATION
  Report Type: Spontaneous
  Country: CO (occurrence: CO)
  Receive Date: 20191015
  Receipt Date: 20191015
  Transmission Date: 20200122
  Serious: Yes (Hospitalization)
  Sender: FDA-Public Use
  Company Number: CO-CIPHER-2019-CO-000001

PATIENT
  Age: 28 Year
  Sex: Male
  Weight: 72 kg

DRUGS (10)
  1. ENALAPRIL [Concomitant]
     Active Substance: ENALAPRIL
     Indication: MYOCARDIAL INFARCTION
     Dosage: DOSAGE + UNIT: 5 MG MILLIGRAM(S) - NO. OF SEPARATE DOSAGES: 1 - NO. OF UNITS PER INTERVAL: 12 - INTE
     Route: 065
     Dates: start: 2009
  2. METHADONE CHLORALHYDRATE [Concomitant]
     Indication: ANALGESIC THERAPY
     Dosage: DOSAGE + UNIT: 5 MG MILLIGRAM(S) - NO. OF SEPARATE DOSAGES: 1 - NO. OF UNITS PER INTERVAL: 12- INTER
     Route: 048
     Dates: start: 20190928
  3. SPIRONOLACTONE. [Concomitant]
     Active Substance: SPIRONOLACTONE
     Indication: PULMONARY HYPERTENSION
     Dosage: DOSAGE + UNIT: 25 MG MILLIGRAM(S) - NO. OF SEPARATE DOSAGES: 1 - NO. OF UNITS PER INTERVAL: 24 -INTE
     Route: 048
     Dates: start: 2009
  4. TRAMADOL HYDROCHLORIDE. [Suspect]
     Active Substance: TRAMADOL HYDROCHLORIDE
     Indication: ANALGESIC THERAPY
     Dosage: 100 MG/ML, EVERY 24 HOURS
     Route: 048
     Dates: start: 2017, end: 20190927
  5. FUROSEMIDA [Concomitant]
     Active Substance: FUROSEMIDE
     Indication: MYOCARDIAL INFARCTION
     Dosage: DOSAGE + UNIT: 40 MG MILLIGRAM(S) - NO. OF SEPARATE DOSAGES: 1 - NO. OF UNITS PER INTERVAL: 24 - INT
     Route: 048
     Dates: start: 2009
  6. REMODULIN [Suspect]
     Active Substance: TREPROSTINIL
     Indication: PULMONARY HYPERTENSION
     Dosage: 58 NG/KG/MIN
     Route: 058
     Dates: start: 20170923
  7. SILDENAFIL. [Concomitant]
     Active Substance: SILDENAFIL
     Indication: MYOCARDIAL INFARCTION
     Dosage: NO. OF SEPARATE DOSAGES: 1 - NO. OF UNITS PER INTERVAL: 12 - INTERVAL: HOUR
     Route: 048
     Dates: start: 2009
  8. BETAMETHYLDIGOXIN [Concomitant]
     Indication: MYOCARDIAL INFARCTION
     Dosage: DOSAGE + UNIT: 0.6 MG MILLIGRAM(S) - NO. OF SEPARATE DOSAGES: 1 - NO. OF UNITS PER INTERVAL: 24 -INT
     Route: 048
     Dates: start: 2017
  9. BOSENTAN. [Concomitant]
     Active Substance: BOSENTAN
     Indication: PULMONARY HYPERTENSION
     Dosage: NO. OF SEPARATE DOSAGES: 1 - NO. OF UNITS PER INTERVAL: 12 - INTERVAL:
     Route: 048
     Dates: start: 2019
  10. HYDROMORPHONE [Concomitant]
     Active Substance: HYDROMORPHONE
     Indication: ANALGESIC THERAPY
     Route: 042
     Dates: start: 20190928, end: 20190930

REACTIONS (11)
  - Chest pain [Unknown]
  - Nausea [Unknown]
  - Vomiting [Unknown]
  - Cyanosis central [Unknown]
  - Chills [Unknown]
  - Malaise [Unknown]
  - Asthenia [Unknown]
  - Cyanosis [Unknown]
  - Productive cough [Unknown]
  - Dyspnoea [Unknown]
  - Back pain [Unknown]
